FAERS Safety Report 4382528-6 (Version None)
Quarter: 2004Q2

REPORT INFORMATION
  Report Type: 
  Country: None (occurrence: None)
  Receive Date: 20040617
  Receipt Date: 20040504
  Transmission Date: 20050107
  Serious: Yes (Hospitalization)
  Sender: FDA-Public Use
  Company Number: 2004036182

PATIENT
  Sex: Female

DRUGS (4)
  1. SERTRALINE (SERTRALINE) [Suspect]
     Indication: ILL-DEFINED DISORDER
     Dosage: 200 MG, (200 MG), ORAL
     Route: 048
     Dates: start: 20030101
  2. LISINOPRIL [Concomitant]
  3. LEVOTHYROXINE SODIUM [Concomitant]
  4. ALL OTHER THERAPEUTIC  PRODUCTS (ALL OTHER THERAPEUTIC PRODUCTS) [Concomitant]

REACTIONS (18)
  - BLOOD CREATINE INCREASED [None]
  - DIARRHOEA [None]
  - DIZZINESS [None]
  - DRUG WITHDRAWAL SYNDROME [None]
  - DYSPNOEA [None]
  - FEELING ABNORMAL [None]
  - HYPOAESTHESIA [None]
  - INFLUENZA LIKE ILLNESS [None]
  - LOSS OF CONSCIOUSNESS [None]
  - MUSCLE TWITCHING [None]
  - NAUSEA [None]
  - PARAESTHESIA [None]
  - PYREXIA [None]
  - SENSATION OF BLOCK IN EAR [None]
  - SUICIDAL IDEATION [None]
  - SYNCOPE [None]
  - TINNITUS [None]
  - VOMITING [None]
